FAERS Safety Report 10906309 (Version 1)
Quarter: 2015Q1

REPORT INFORMATION
  Report Type: Spontaneous
  Country: US (occurrence: US)
  Receive Date: 20150311
  Receipt Date: 20150311
  Transmission Date: 20150721
  Serious: Yes (Death, Hospitalization)
  Sender: FDA-Public Use
  Company Number: PHHY2015US028872

PATIENT

DRUGS (1)
  1. VENLAFAXINE [Suspect]
     Active Substance: VENLAFAXINE HYDROCHLORIDE
     Indication: PRODUCT USED FOR UNKNOWN INDICATION
     Route: 065

REACTIONS (11)
  - Bradycardia [Unknown]
  - Heart rate increased [Unknown]
  - Toxicity to various agents [Fatal]
  - Overdose [Fatal]
  - Agitation [Unknown]
  - Unresponsive to stimuli [Unknown]
  - Cardiac failure [Unknown]
  - Aphasia [Unknown]
  - Cardiac arrest [Unknown]
  - Ventricular fibrillation [Unknown]
  - Dyskinesia [Unknown]
